FAERS Safety Report 8593695-2 (Version None)
Quarter: 2012Q3

REPORT INFORMATION
  Report Type: 
  Country: None (occurrence: None)
  Receive Date: 20120814
  Receipt Date: 20120806
  Transmission Date: 20120928
  Serious: No
  Sender: FDA-Public Use
  Company Number: US-ASTRAZENECA-2012SE55564

PATIENT
  Age: 61 Year
  Sex: Male
  Weight: 103.9 kg

DRUGS (6)
  1. NEXIUM [Suspect]
     Indication: GASTROOESOPHAGEAL REFLUX DISEASE
     Route: 048
  2. KERLONE [Concomitant]
     Indication: HYPERTENSION
  3. NEXIUM [Suspect]
     Route: 048
     Dates: start: 20010101
  4. PRILOSEC [Suspect]
     Indication: GASTROOESOPHAGEAL REFLUX DISEASE
     Route: 048
  5. KLONOPIN [Concomitant]
     Indication: ANXIETY
  6. ZOLOFT [Concomitant]
     Indication: ANXIETY

REACTIONS (3)
  - BURNING SENSATION [None]
  - PAIN [None]
  - DRUG INEFFECTIVE [None]
